FAERS Safety Report 11100627 (Version 2)
Quarter: 2015Q2

REPORT INFORMATION
  Report Type: Spontaneous
  Country: US (occurrence: US)
  Receive Date: 20150508
  Receipt Date: 20150610
  Transmission Date: 20150821
  Serious: Yes (Other)
  Sender: FDA-Public Use
  Company Number: US-PFIZER INC-2015155264

PATIENT
  Sex: Male

DRUGS (1)
  1. CELEBREX [Suspect]
     Active Substance: CELECOXIB
     Dosage: UNK

REACTIONS (7)
  - Type 2 diabetes mellitus [Unknown]
  - Back disorder [Unknown]
  - Hypertension [Unknown]
  - Cerebrovascular accident [Unknown]
  - Ageusia [Recovered/Resolved]
  - Sensory loss [Unknown]
  - Arthritis [Unknown]
